FAERS Safety Report 17911076 (Version 2)
Quarter: 2020Q2

REPORT INFORMATION
  Report Type: Report from Study
  Country: PL (occurrence: PL)
  Receive Date: 20200618
  Receipt Date: 20200624
  Transmission Date: 20200714
  Serious: Yes (Hospitalization, Other)
  Sender: FDA-Public Use
  Company Number: PL-AUROBINDO-AUR-APL-2020-029892

PATIENT
  Sex: Female

DRUGS (14)
  1. RANITIDINE. [Suspect]
     Active Substance: RANITIDINE
     Indication: INTESTINAL OBSTRUCTION
  2. DEXAMETHASONE. [Suspect]
     Active Substance: DEXAMETHASONE
     Indication: ENDOMETRIAL CANCER
     Dosage: UNK
     Route: 065
  3. SIMETHICONE (DIMETHICONE) [Suspect]
     Active Substance: DIMETHICONE
     Indication: ENDOMETRIAL CANCER
     Dosage: UNK
     Route: 065
  4. MEBEVERINE [Suspect]
     Active Substance: MEBEVERINE
     Indication: ENDOMETRIAL CANCER
     Dosage: UNK
     Route: 065
  5. DEXAMETHASONE. [Suspect]
     Active Substance: DEXAMETHASONE
     Indication: INTESTINAL OBSTRUCTION
  6. BUSCOLYSIN [Suspect]
     Active Substance: BUTYLSCOPOLAMINE
     Indication: INTESTINAL OBSTRUCTION
  7. MAGNESIUM SULFATE. [Suspect]
     Active Substance: MAGNESIUM SULFATE
     Indication: INTESTINAL OBSTRUCTION
  8. OMEPRAZOLE. [Suspect]
     Active Substance: OMEPRAZOLE
     Indication: ENDOMETRIAL CANCER
     Dosage: UNK
     Route: 065
  9. RANITIDINE. [Suspect]
     Active Substance: RANITIDINE
     Indication: ENDOMETRIAL CANCER
     Dosage: UNK
     Route: 065
  10. BUSCOLYSIN [Suspect]
     Active Substance: BUTYLSCOPOLAMINE
     Indication: ENDOMETRIAL CANCER
     Dosage: UNK
     Route: 065
  11. MAGNESIUM SULFATE. [Suspect]
     Active Substance: MAGNESIUM SULFATE
     Indication: ENDOMETRIAL CANCER
     Dosage: UNK
     Route: 065
  12. MEBEVERINE [Suspect]
     Active Substance: MEBEVERINE
     Indication: INTESTINAL OBSTRUCTION
  13. OMEPRAZOLE. [Suspect]
     Active Substance: OMEPRAZOLE
     Indication: INTESTINAL OBSTRUCTION
  14. SIMETHICONE (DIMETHICONE) [Suspect]
     Active Substance: DIMETHICONE
     Indication: INTESTINAL OBSTRUCTION

REACTIONS (2)
  - Drug ineffective [Unknown]
  - Drug ineffective for unapproved indication [Unknown]
